FAERS Safety Report 14408094 (Version 2)
Quarter: 2018Q1

REPORT INFORMATION
  Report Type: Spontaneous
  Country: US (occurrence: US)
  Receive Date: 20180118
  Receipt Date: 20180329
  Transmission Date: 20180509
  Serious: No
  Sender: FDA-Public Use
  Company Number: US-GREER LABORATORIES, INC.-2040304

PATIENT
  Age: 64 Year
  Sex: Male
  Weight: 100 kg

DRUGS (2)
  1. MOLDS, RUSTS AND SMUTS, GS MOLD MIX #1 [Suspect]
     Active Substance: ALTERNARIA ALTERNATA\ ASPERGILLUS NIGER VAR. NIGER\COCHLIOBOLUS SATIVUS\CLADOSPORIUM SPHAEROSPERMUM\PENICILLIUM CHRYSOGENUM VAR. CHRYSOGENUM
     Indication: RHINITIS ALLERGIC
     Route: 058
  2. ZYCOR [Concomitant]
     Route: 048

REACTIONS (6)
  - Feeling abnormal [Unknown]
  - Dysgeusia [Unknown]
  - Hypoaesthesia oral [Unknown]
  - Dysarthria [Unknown]
  - Sensory loss [Unknown]
  - Influenza like illness [Unknown]

NARRATIVE: CASE EVENT DATE: 20171213
